FAERS Safety Report 6456278-6 (Version None)
Quarter: 2009Q4

REPORT INFORMATION
  Report Type: 
  Country: None (occurrence: None)
  Receive Date: 20091125
  Receipt Date: 20091116
  Transmission Date: 20100525
  Serious: Yes (Life-Threatening, Hospitalization, Other)
  Sender: FDA-Public Use
  Company Number: US-ELI_LILLY_AND_COMPANY-US200911000124

PATIENT
  Age: 66 Year
  Sex: Male
  Weight: 92.517 kg

DRUGS (3)
  1. EFFIENT [Suspect]
     Indication: CORONARY ARTERY DISEASE
     Dosage: 10 MG, UNK
     Route: 048
     Dates: start: 20090917, end: 20091027
  2. HEPARIN [Concomitant]
     Dosage: 5600 U, UNK
     Route: 042
     Dates: start: 20091026
  3. ASPIRIN [Concomitant]
     Dosage: 160 MG, UNK
     Dates: start: 20091026

REACTIONS (5)
  - DRUG DOSE OMISSION [None]
  - OEDEMA PERIPHERAL [None]
  - PAIN IN EXTREMITY [None]
  - POST PROCEDURAL HAEMORRHAGE [None]
  - UNRESPONSIVE TO STIMULI [None]
